FAERS Safety Report 18315622 (Version 3)
Quarter: 2020Q4

REPORT INFORMATION
  Report Type: Report from Study
  Country: IN (occurrence: IN)
  Receive Date: 20200926
  Receipt Date: 20201223
  Transmission Date: 20210113
  Serious: Yes (Other)
  Sender: FDA-Public Use
  Company Number: PHHY2018IN044442

PATIENT
  Age: 59 Year
  Sex: Female
  Weight: 54.7 kg

DRUGS (5)
  1. SPEXIB [Suspect]
     Active Substance: CERITINIB
     Dosage: 300 MG, QD
     Route: 048
     Dates: start: 20180501
  2. SPEXIB [Suspect]
     Active Substance: CERITINIB
     Dosage: 300 MG, QD
     Route: 065
     Dates: start: 20180502, end: 20190809
  3. SPEXIB [Suspect]
     Active Substance: CERITINIB
     Indication: NON-SMALL CELL LUNG CANCER
     Dosage: 450 MG, QD
     Route: 048
     Dates: start: 20180314, end: 20180501
  4. SPEXIB [Suspect]
     Active Substance: CERITINIB
     Dosage: 300 MG, QD
     Route: 065
     Dates: start: 20200221
  5. SPEXIB [Suspect]
     Active Substance: CERITINIB
     Dosage: 300 MG, QOD  (300 MG OD ALTERNATE WITH 450 MG OD)
     Route: 065
     Dates: start: 20190810, end: 20200220

REACTIONS (12)
  - Brain oedema [Unknown]
  - Muscular weakness [Recovering/Resolving]
  - General physical health deterioration [Recovering/Resolving]
  - Asthenia [Recovering/Resolving]
  - Central nervous system lesion [Unknown]
  - Hyperchlorhydria [Recovered/Resolved]
  - Non-small cell lung cancer [Unknown]
  - Sensory loss [Recovering/Resolving]
  - Diarrhoea [Recovered/Resolved]
  - Depressed level of consciousness [Recovering/Resolving]
  - Decreased appetite [Recovering/Resolving]
  - Malignant neoplasm progression [Unknown]

NARRATIVE: CASE EVENT DATE: 201803
